FAERS Safety Report 10195054 (Version 1)
Quarter: 2014Q2

REPORT INFORMATION
  Report Type: Spontaneous
  Country: FR (occurrence: FR)
  Receive Date: 20140526
  Receipt Date: 20140526
  Transmission Date: 20141212
  Serious: Yes (Hospitalization)
  Sender: FDA-Public Use
  Company Number: PHHY2014FR062905

PATIENT
  Sex: Male

DRUGS (18)
  1. TASIGNA [Suspect]
     Indication: CHRONIC MYELOID LEUKAEMIA
     Dosage: 800 MG, DAILY
     Route: 048
     Dates: start: 200809, end: 201101
  2. TASIGNA [Suspect]
     Dosage: 600 MG, DAILY
     Route: 048
     Dates: start: 201101, end: 201308
  3. LASILIX [Concomitant]
  4. DETENSIEL [Concomitant]
  5. DIFFU K [Concomitant]
  6. TRIATEC [Concomitant]
  7. INEGY [Concomitant]
  8. ZYLORIC [Concomitant]
  9. JOSIR [Concomitant]
  10. HEXAQUINE [Concomitant]
  11. MOVICOL [Concomitant]
  12. CLOPIDOGREL [Concomitant]
  13. DOLIPRANE [Concomitant]
  14. KARDEGIC [Concomitant]
  15. CALCIPARINE [Concomitant]
  16. FORLAX [Concomitant]
  17. TRANSIPEG                          /01618701/ [Concomitant]
  18. LYRICA [Concomitant]

REACTIONS (2)
  - Arteritis [Not Recovered/Not Resolved]
  - Thrombosis [Recovered/Resolved]
